FAERS Safety Report 20205196 (Version 1)
Quarter: 2021Q4

REPORT INFORMATION
  Report Type: Spontaneous
  Country: SI (occurrence: None)
  Receive Date: 20211220
  Receipt Date: 20211220
  Transmission Date: 20220303
  Serious: Yes (Other)
  Sender: FDA-Public Use
  Company Number: SI-ROCHE-2977502

PATIENT
  Age: 47 Year
  Sex: Female

DRUGS (2)
  1. BEVACIZUMAB [Suspect]
     Active Substance: BEVACIZUMAB
     Indication: Product used for unknown indication
     Route: 065
  2. CAPECITABINE [Suspect]
     Active Substance: CAPECITABINE
     Indication: Product used for unknown indication
     Route: 048

REACTIONS (16)
  - Myocardial ischaemia [Unknown]
  - Left ventricular enlargement [Unknown]
  - Ejection fraction decreased [Unknown]
  - Mitral valve incompetence [Unknown]
  - Renal impairment [Unknown]
  - Diarrhoea [Unknown]
  - Blood pressure decreased [Unknown]
  - Haemorrhoids [Unknown]
  - Dry skin [Unknown]
  - Nausea [Unknown]
  - Feeling hot [Unknown]
  - Pain in extremity [Unknown]
  - Pain [Unknown]
  - Akinesia [Unknown]
  - Musculoskeletal chest pain [Unknown]
  - Chest injury [Unknown]

NARRATIVE: CASE EVENT DATE: 20200101
